FAERS Safety Report 9204310 (Version 2)
Quarter: 2013Q4

REPORT INFORMATION
  Report Type: Spontaneous
  Country: US (occurrence: US)
  Receive Date: 20130402
  Receipt Date: 20131127
  Transmission Date: 20140711
  Serious: Yes (Other)
  Sender: FDA-Public Use
  Company Number: US-BAYER-2013-038718

PATIENT
  Sex: Female

DRUGS (12)
  1. YAZ [Suspect]
  2. YASMIN [Suspect]
  3. OCELLA [Suspect]
  4. LEVOTHYROXINE [Concomitant]
     Dosage: 25 MCG
     Route: 048
     Dates: start: 20080213
  5. BUTALBITAL, ACETAMINOPHEN + CAFFEINE [Concomitant]
     Dosage: UNK
     Route: 048
     Dates: start: 20080213
  6. SKELAXIN [Concomitant]
     Dosage: 800 MG, UNK
     Route: 048
     Dates: start: 20080213
  7. METFORMIN [Concomitant]
     Dosage: 500 MG, UNK
     Route: 048
     Dates: start: 20080310, end: 20080409
  8. PROPANOLOL [Concomitant]
     Dosage: 60 MG, UNK
     Route: 048
     Dates: start: 20080310
  9. IMITREX [Concomitant]
     Dosage: 100 MG, UNK
     Route: 048
     Dates: start: 20080311
  10. OXYCODONE/APAP [Concomitant]
     Dosage: 5-325
     Route: 048
     Dates: start: 20080407
  11. CIPROFLOXACIN [Concomitant]
     Dosage: 500 MG, UNK
     Route: 048
     Dates: start: 20080416
  12. PERCOCET [Concomitant]

REACTIONS (5)
  - Gallbladder injury [None]
  - Cholelithiasis [None]
  - Injury [None]
  - Pain [None]
  - Pain [None]
